FAERS Safety Report 15953104 (Version 1)
Quarter: 2019Q1

REPORT INFORMATION
  Report Type: Spontaneous
  Country: SE (occurrence: SE)
  Receive Date: 20190211
  Receipt Date: 20190211
  Transmission Date: 20190417
  Serious: Yes (Hospitalization)
  Sender: FDA-Public Use
  Company Number: SE-TEVA-2019-SE-1009340

PATIENT
  Age: 29 Year
  Sex: Female

DRUGS (5)
  1. COCILLANA-ETYFIN [Suspect]
     Active Substance: ETHYLMORPHINE HYDROCHLORIDE\HERBALS
     Dosage: 1 DL COCILLANA
     Route: 048
     Dates: start: 20180308, end: 20180308
  2. STESOLID [Suspect]
     Active Substance: DIAZEPAM
     Dosage: 80 MG
     Route: 048
     Dates: start: 20180308, end: 20180308
  3. INDERAL [Suspect]
     Active Substance: PROPRANOLOL HYDROCHLORIDE
     Dosage: 3 INDERAL,10MG
     Route: 048
     Dates: start: 20180308, end: 20180308
  4. IBUPROFEN. [Suspect]
     Active Substance: IBUPROFEN
     Dosage: 1 IBUPROFEN
     Route: 048
     Dates: start: 20180308, end: 20180308
  5. PANODIL [Suspect]
     Active Substance: ACETAMINOPHEN
     Route: 048
     Dates: start: 20180308, end: 20180308

REACTIONS (4)
  - Toxicity to various agents [Unknown]
  - Fatigue [Unknown]
  - Intentional overdose [Unknown]
  - Intentional self-injury [Unknown]

NARRATIVE: CASE EVENT DATE: 20180308
